FAERS Safety Report 22169983 (Version 2)
Quarter: 2023Q2

REPORT INFORMATION
  Report Type: Spontaneous
  Country: US (occurrence: US)
  Receive Date: 20230404
  Receipt Date: 20230405
  Transmission Date: 20230722
  Serious: No
  Sender: FDA-Public Use
  Company Number: US-BIOGEN-2017BI00479841

PATIENT
  Sex: Female

DRUGS (3)
  1. TECFIDERA [Interacting]
     Active Substance: DIMETHYL FUMARATE
     Indication: Multiple sclerosis
     Dosage: MAINTENANCE DOSE
     Route: 050
     Dates: start: 201609
  2. TECFIDERA [Interacting]
     Active Substance: DIMETHYL FUMARATE
     Route: 050
     Dates: start: 20130101
  3. TECFIDERA [Interacting]
     Active Substance: DIMETHYL FUMARATE
     Route: 050

REACTIONS (4)
  - Cognitive disorder [Unknown]
  - Stress [Unknown]
  - Emotional disorder [Recovered/Resolved]
  - Hypersensitivity [Not Recovered/Not Resolved]
